FAERS Safety Report 5014577-9 (Version None)
Quarter: 2006Q2

REPORT INFORMATION
  Report Type: 
  Country: None (occurrence: None)
  Receive Date: 20060531
  Receipt Date: 20060421
  Transmission Date: 20061013
  Serious: Yes (Hospitalization)
  Sender: FDA-Public Use
  Company Number: GXKR2006DE02293

PATIENT
  Age: 51 Year
  Sex: Female
  Weight: 60 kg

DRUGS (9)
  1. VOLTAREN [Suspect]
     Indication: POSTOPERATIVE ANALGESIA
     Dosage: 50 MG, BID
     Route: 054
     Dates: start: 20060401, end: 20060401
  2. EMBOLEX [Suspect]
  3. DULCOLAX [Suspect]
     Dosage: 2 DF, QD
     Route: 054
     Dates: start: 20060401, end: 20060401
  4. CELEBREX [Suspect]
     Indication: PAIN PROPHYLAXIS
     Dosage: 200 MG, QD
     Route: 048
     Dates: start: 20060331, end: 20060331
  5. HORMONES [Concomitant]
  6. ANAESTHETICS [Concomitant]
  7. HEPARIN [Concomitant]
     Route: 042
  8. REFLUDAN [Concomitant]
  9. LAXOBERAL [Suspect]

REACTIONS (39)
  - ACTIVATED PARTIAL THROMBOPLASTIN TIME PROLONGED [None]
  - ANAEMIA [None]
  - ANGINA PECTORIS [None]
  - ANXIETY [None]
  - ASTHENIA [None]
  - ATELECTASIS [None]
  - BASE EXCESS INCREASED [None]
  - BLOOD BICARBONATE DECREASED [None]
  - BRADYCARDIA [None]
  - C-REACTIVE PROTEIN INCREASED [None]
  - CHEST PAIN [None]
  - CHILLS [None]
  - CONDUCTION DISORDER [None]
  - DIARRHOEA [None]
  - DRUG INTOLERANCE [None]
  - DYSPNOEA [None]
  - ELECTROCARDIOGRAM T WAVE INVERSION [None]
  - EMBOLISM [None]
  - HAEMATOMA [None]
  - HAEMOGLOBIN DECREASED [None]
  - HYPERVENTILATION [None]
  - HYPOKALAEMIA [None]
  - LEUKOCYTOSIS [None]
  - NAUSEA [None]
  - ORAL PAIN [None]
  - OXYGEN SATURATION DECREASED [None]
  - PLEURAL EFFUSION [None]
  - PO2 DECREASED [None]
  - PROTHROMBIN TIME PROLONGED [None]
  - PULMONARY CONGESTION [None]
  - PYREXIA [None]
  - RESPIRATORY FAILURE [None]
  - SINUS TACHYCARDIA [None]
  - SPEECH DISORDER [None]
  - STOMATITIS [None]
  - THROMBOCYTOPENIA [None]
  - URINARY TRACT INFECTION [None]
  - VASODILATATION [None]
  - VOMITING [None]
